FAERS Safety Report 9767546 (Version 3)
Quarter: 2015Q3

REPORT INFORMATION
  Report Type: Spontaneous
  Country: US (occurrence: US)
  Receive Date: 20131217
  Receipt Date: 20150731
  Transmission Date: 20151125
  Serious: Yes (Hospitalization)
  Sender: FDA-Public Use
  Company Number: US-GILEAD-2009-0022806

PATIENT
  Age: 80 Year
  Sex: Female

DRUGS (8)
  1. CAPTOPRIL. [Concomitant]
     Active Substance: CAPTOPRIL
  2. LOVASTATIN. [Concomitant]
     Active Substance: LOVASTATIN
  3. VIREAD [Suspect]
     Active Substance: TENOFOVIR DISOPROXIL FUMARATE
     Indication: HEPATITIS B
     Dates: start: 20090527, end: 20090629
  4. METOPROLOL [Concomitant]
     Active Substance: METOPROLOL
  5. ALEVE [Concomitant]
     Active Substance: NAPROXEN SODIUM
  6. PRILOSEC [Concomitant]
     Active Substance: OMEPRAZOLE MAGNESIUM
  7. ACTOS [Concomitant]
     Active Substance: PIOGLITAZONE HYDROCHLORIDE
  8. ZYRTEC [Concomitant]
     Active Substance: CETIRIZINE HYDROCHLORIDE

REACTIONS (1)
  - Liver function test abnormal [Recovered/Resolved]
